FAERS Safety Report 21005228 (Version 2)
Quarter: 2022Q3

REPORT INFORMATION
  Report Type: Report from Study
  Country: US (occurrence: US)
  Receive Date: 20220624
  Receipt Date: 20220722
  Transmission Date: 20221027
  Serious: Yes (Hospitalization, Other)
  Sender: FDA-Public Use
  Company Number: US-BIOVITRUM-2022US08030

PATIENT
  Sex: Female

DRUGS (3)
  1. KINERET [Suspect]
     Active Substance: ANAKINRA
     Indication: Rheumatoid arthritis
     Dates: start: 20211113
  2. KINERET [Suspect]
     Active Substance: ANAKINRA
     Indication: Pyrexia
     Dates: start: 2016
  3. ILARIS [Suspect]
     Active Substance: CANAKINUMAB

REACTIONS (12)
  - Pyrexia [Unknown]
  - Dehydration [Unknown]
  - Blood potassium decreased [Unknown]
  - Gastroenteritis viral [Unknown]
  - Sepsis [Unknown]
  - Drug intolerance [Unknown]
  - SARS-CoV-2 test positive [Unknown]
  - Pain [Unknown]
  - Fall [Unknown]
  - Ankle fracture [Unknown]
  - Drug hypersensitivity [Unknown]
  - Off label use [Not Recovered/Not Resolved]

NARRATIVE: CASE EVENT DATE: 20160101
